FAERS Safety Report 9516313 (Version 1)
Quarter: 2013Q3

REPORT INFORMATION
  Report Type: Report from Study
  Country: JP (occurrence: JP)
  Receive Date: 20130911
  Receipt Date: 20130911
  Transmission Date: 20140515
  Serious: Yes (Other)
  Sender: FDA-Public Use
  Company Number: JP-JNJFOC-20130905040

PATIENT
  Age: 63 Year
  Sex: Male
  Weight: 66 kg

DRUGS (12)
  1. XARELTO [Suspect]
     Indication: ATRIAL FIBRILLATION
     Route: 048
     Dates: start: 20120611, end: 20120908
  2. XARELTO [Suspect]
     Indication: CEREBROVASCULAR ACCIDENT PROPHYLAXIS
     Route: 048
     Dates: start: 20120611, end: 20120908
  3. XARELTO [Suspect]
     Indication: THROMBOSIS PROPHYLAXIS
     Route: 048
     Dates: start: 20120611, end: 20120908
  4. WARFARIN POTASSIUM [Suspect]
     Indication: PRODUCT USED FOR UNKNOWN INDICATION
     Route: 048
     Dates: start: 20120905
  5. FRANDOL [Concomitant]
     Indication: PROPHYLAXIS
     Route: 062
  6. DIART [Concomitant]
     Route: 048
  7. EPLERENONE [Concomitant]
     Route: 048
  8. MAINTATE [Concomitant]
     Route: 048
  9. CRESTOR [Concomitant]
     Route: 048
  10. BAYASPIRIN [Concomitant]
     Indication: PROPHYLAXIS
     Route: 048
  11. PLAVIX [Concomitant]
     Indication: PROPHYLAXIS
     Route: 048
  12. ALLORIN [Concomitant]
     Route: 048

REACTIONS (1)
  - Renal impairment [Recovered/Resolved]
